FAERS Safety Report 9517894 (Version 3)
Quarter: 2013Q4

REPORT INFORMATION
  Report Type: Spontaneous
  Country: DE (occurrence: DE)
  Receive Date: 20130912
  Receipt Date: 20131113
  Transmission Date: 20140711
  Serious: Yes (Other)
  Sender: FDA-Public Use
  Company Number: DE-ROCHE-1273966

PATIENT
  Age: 74 Year
  Sex: Female
  Weight: 72 kg

DRUGS (5)
  1. MABTHERA [Suspect]
     Indication: RHEUMATOID ARTHRITIS
     Dosage: 2 X 1000 MG IN 6 MONTHS
     Route: 065
     Dates: start: 20100519, end: 20121119
  2. METHOTREXATE [Suspect]
     Indication: RHEUMATOID ARTHRITIS
     Route: 065
     Dates: start: 2007, end: 201309
  3. PREDNISONE [Concomitant]
     Indication: RHEUMATOID ARTHRITIS
     Dosage: STARTED MORE THAN 10 YEARS AGO
     Route: 065
  4. OMEPRAZOL [Concomitant]
     Indication: RHEUMATOID ARTHRITIS
     Dosage: STARTED MORE THAN 5 YEARS AGO
     Route: 065
  5. DICLOFENAC [Concomitant]
     Indication: RHEUMATOID ARTHRITIS
     Dosage: HAS BEEN GIVEN FOR YEARS
     Route: 065

REACTIONS (1)
  - Colon cancer [Unknown]
